FAERS Safety Report 9657828 (Version 2)
Quarter: 2013Q4

REPORT INFORMATION
  Report Type: Spontaneous
  Country: HR (occurrence: HR)
  Receive Date: 20131030
  Receipt Date: 20131030
  Transmission Date: 20140711
  Serious: Yes (Life-Threatening, Hospitalization)
  Sender: FDA-Public Use
  Company Number: HR-SA-CERZ-1002372

PATIENT
  Age: 63 Year
  Sex: Female

DRUGS (1)
  1. CEREZYME [Suspect]
     Indication: GAUCHER^S DISEASE
     Dosage: 400 U, Q2W DOSE:400 UNIT(S)
     Route: 042
     Dates: end: 20120730

REACTIONS (1)
  - Metastases to central nervous system [Recovered/Resolved]
